FAERS Safety Report 26125802 (Version 2)
Quarter: 2025Q4

REPORT INFORMATION
  Report Type: Spontaneous
  Country: EU (occurrence: EU)
  Receive Date: 20251205
  Receipt Date: 20251219
  Transmission Date: 20260117
  Serious: Yes (Hospitalization, Other)
  Sender: TEVA
  Company Number: EU-IPSEN Group, Research and Development-2025-27871

PATIENT
  Age: 74 Year
  Sex: Male
  Weight: 77 kg

DRUGS (5)
  1. ZOLEDRONIC ACID [Suspect]
     Active Substance: ZOLEDRONIC ACID
     Indication: Renal cancer
     Route: 065
  2. NIVOLUMAB [Suspect]
     Active Substance: NIVOLUMAB
     Indication: Renal cancer
     Route: 065
  3. CABOZANTINIB [Suspect]
     Active Substance: CABOZANTINIB
     Indication: Renal cancer
     Dosage: 20MG QD
     Route: 065
  4. CABOZANTINIB [Suspect]
     Active Substance: CABOZANTINIB
     Indication: Renal cancer
     Route: 065
  5. CABOZANTINIB [Suspect]
     Active Substance: CABOZANTINIB
     Indication: Renal cancer
     Route: 065

REACTIONS (16)
  - Hypokalaemia [Unknown]
  - Abdominal pain upper [Unknown]
  - Decreased appetite [Unknown]
  - Asthenia [Unknown]
  - Diarrhoea [Unknown]
  - Fatigue [Unknown]
  - Blood thyroid stimulating hormone increased [Recovered/Resolved]
  - Weight decreased [Unknown]
  - Blood pressure increased [Unknown]
  - Taste disorder [Unknown]
  - Platelet count decreased [Unknown]
  - Skin exfoliation [Unknown]
  - Dysphagia [Unknown]
  - Gastrooesophageal reflux disease [Unknown]
  - Off label use [Unknown]
  - Tenderness [Unknown]
